FAERS Safety Report 13225470 (Version 1)
Quarter: 2017Q1

REPORT INFORMATION
  Report Type: Spontaneous
  Country: RO (occurrence: RO)
  Receive Date: 20170213
  Receipt Date: 20170213
  Transmission Date: 20170428
  Serious: Yes (Other)
  Sender: FDA-Public Use
  Company Number: RO-SUN PHARMACEUTICAL INDUSTRIES LTD-2017RR-133007

PATIENT
  Age: 20 Year
  Sex: Female

DRUGS (8)
  1. MIDAZOLAM [Suspect]
     Active Substance: MIDAZOLAM HYDROCHLORIDE
     Indication: PSYCHOTIC DISORDER
     Dosage: 7.5 MG, DAILY
     Route: 065
  2. TOPIRAMATE. [Suspect]
     Active Substance: TOPIRAMATE
     Indication: PSYCHOTIC DISORDER
     Dosage: 100 MG, DAILY
     Route: 065
  3. LORAZEPAM. [Concomitant]
     Active Substance: LORAZEPAM
     Indication: SCHIZOPHRENIA
     Dosage: 2 MG, DAILY
     Route: 065
  4. TOPIRAMATE. [Concomitant]
     Active Substance: TOPIRAMATE
     Indication: SCHIZOPHRENIA
     Dosage: 150 MG, DAILY
     Route: 065
  5. ARIPIPRAZOLE. [Suspect]
     Active Substance: ARIPIPRAZOLE
     Indication: PSYCHOTIC DISORDER
     Dosage: 10 MG, DAILY
     Route: 065
  6. RISPERIDONE. [Suspect]
     Active Substance: RISPERIDONE
     Indication: PSYCHOTIC DISORDER
     Dosage: 2-6 MG/DAY
     Route: 065
  7. LORAZEPAM. [Suspect]
     Active Substance: LORAZEPAM
     Indication: PSYCHOTIC DISORDER
     Dosage: 2 MG, DAILY
     Route: 065
  8. QUETIAPINE. [Concomitant]
     Active Substance: QUETIAPINE
     Indication: SCHIZOPHRENIA
     Dosage: 400 MG, DAILY
     Route: 065

REACTIONS (3)
  - Dyslipidaemia [Unknown]
  - Drug effect incomplete [Unknown]
  - Hyperprolactinaemia [Unknown]
